FAERS Safety Report 14665474 (Version 3)
Quarter: 2019Q2

REPORT INFORMATION
  Report Type: Spontaneous
  Country: US (occurrence: US)
  Receive Date: 20180321
  Receipt Date: 20190513
  Transmission Date: 20190711
  Serious: Yes (Other)
  Sender: FDA-Public Use
  Company Number: US-ASTRAZENECA-2018SE34116

PATIENT
  Age: 29254 Day
  Sex: Male
  Weight: 58.1 kg

DRUGS (34)
  1. PREVIDENT [Concomitant]
     Active Substance: SODIUM FLUORIDE
     Indication: TOOTH REPAIR
     Route: 065
     Dates: start: 20090126, end: 20160824
  2. NEXIUM [Suspect]
     Active Substance: ESOMEPRAZOLE MAGNESIUM
     Indication: GASTROOESOPHAGEAL REFLUX DISEASE
     Route: 048
     Dates: start: 2011, end: 2013
  3. TUMS [Concomitant]
     Active Substance: CALCIUM CARBONATE
     Route: 065
  4. LESCOL [Concomitant]
     Active Substance: FLUVASTATIN SODIUM
     Route: 048
     Dates: start: 20020619
  5. CIPROFLOXACIN. [Concomitant]
     Active Substance: CIPROFLOXACIN
     Indication: INFECTION
     Route: 048
     Dates: start: 20100320, end: 20141124
  6. AFLURIA NOS [Concomitant]
     Active Substance: INFLUENZA VIRUS VACCINE TRIVALENT TYPE A+B AFLURIA
     Indication: INFLUENZA IMMUNISATION
     Route: 065
     Dates: start: 20151019
  7. NEXIUM [Suspect]
     Active Substance: ESOMEPRAZOLE MAGNESIUM
     Indication: GASTROOESOPHAGEAL REFLUX DISEASE
     Route: 048
     Dates: start: 20111102
  8. ALLEGRA [Concomitant]
     Active Substance: FEXOFENADINE HYDROCHLORIDE
     Indication: MULTIPLE ALLERGIES
     Route: 048
     Dates: start: 20100902, end: 20110512
  9. HYDROCODON-ACETAMINOPHEN [Concomitant]
     Active Substance: ACETAMINOPHEN\HYDROCODONE
     Indication: PAIN
     Dosage: TAKE 1 TABLET BY MOUTH EVERY 6 HOURS AS NEEDED FOR PAIN
     Route: 065
     Dates: start: 20141210
  10. ZANAFLEX [Concomitant]
     Active Substance: TIZANIDINE HYDROCHLORIDE
  11. MIDAZOLAM [Concomitant]
     Active Substance: MIDAZOLAM HYDROCHLORIDE
  12. NEXIUM [Suspect]
     Active Substance: ESOMEPRAZOLE MAGNESIUM
     Indication: GASTROOESOPHAGEAL REFLUX DISEASE
     Route: 048
     Dates: start: 2011, end: 2014
  13. CRESTOR [Concomitant]
     Active Substance: ROSUVASTATIN CALCIUM
     Indication: BLOOD CHOLESTEROL INCREASED
     Route: 048
     Dates: start: 20090615
  14. CLOTRIMAZOLE AND BETAMETHASONE DIPROPIONATE [Concomitant]
     Active Substance: BETAMETHASONE\BETAMETHASONE DIPROPIONATE\CLOTRIMAZOLE
     Indication: INFECTION
     Route: 065
     Dates: start: 20100119, end: 20100611
  15. AMOXICILLIN. [Concomitant]
     Active Substance: AMOXICILLIN
     Indication: INFECTION
     Dosage: TAKE 2 CAPSULES BY MOUTH 2 TIMES DAILY
     Route: 048
     Dates: start: 20140604
  16. PEPTO-BISMOL [Concomitant]
     Active Substance: BISMUTH SUBSALICYLATE
     Route: 065
  17. BETAMETHASONE. [Concomitant]
     Active Substance: BETAMETHASONE
     Indication: PRURITUS
     Route: 065
     Dates: start: 20100520, end: 20160523
  18. ANUCORT-HC [Concomitant]
     Active Substance: HYDROCORTISONE ACETATE
     Indication: PRURITUS
     Route: 065
     Dates: start: 20100928, end: 20110214
  19. LEVOFLOXACIN. [Concomitant]
     Active Substance: LEVOFLOXACIN
     Indication: INFECTION
     Route: 048
     Dates: start: 20140604
  20. TIZANIDINE. [Concomitant]
     Active Substance: TIZANIDINE
  21. MUPIROCIN. [Concomitant]
     Active Substance: MUPIROCIN
     Indication: INFECTION
     Route: 065
     Dates: start: 20090221
  22. ONDANSETRON [Concomitant]
     Active Substance: ONDANSETRON
     Indication: NAUSEA
     Route: 048
     Dates: start: 20141210
  23. ASPIRIN. [Concomitant]
     Active Substance: ASPIRIN
     Route: 048
     Dates: start: 20140310
  24. TAMSULOSIN [Concomitant]
     Active Substance: TAMSULOSIN
     Indication: PROSTATOMEGALY
     Route: 048
     Dates: start: 20110909, end: 20140624
  25. NITROFURANTOIN. [Concomitant]
     Active Substance: NITROFURANTOIN
     Indication: INFECTION
     Dosage: TAKE 1 CAPSULE BY MOUTH TWICE DAILY. TAKE WITH FOOD.
     Route: 048
     Dates: start: 20140902
  26. FINASTERIDE. [Concomitant]
     Active Substance: FINASTERIDE
     Indication: PROSTATOMEGALY
     Route: 048
     Dates: start: 20140903, end: 20141030
  27. TYLENOL [Concomitant]
     Active Substance: ACETAMINOPHEN
  28. OMEPRAZOLE. [Suspect]
     Active Substance: OMEPRAZOLE
     Indication: GASTROOESOPHAGEAL REFLUX DISEASE
     Dosage: GENERIC
     Route: 065
     Dates: start: 2014
  29. OMEPRAZOLE. [Suspect]
     Active Substance: OMEPRAZOLE
     Indication: GASTROOESOPHAGEAL REFLUX DISEASE
     Route: 048
     Dates: start: 20140604
  30. OMEPRAZOLE. [Suspect]
     Active Substance: OMEPRAZOLE
     Indication: GASTROOESOPHAGEAL REFLUX DISEASE
     Route: 048
     Dates: start: 20160316
  31. ZOCOR [Concomitant]
     Active Substance: SIMVASTATIN
     Indication: BLOOD CHOLESTEROL INCREASED
     Route: 048
     Dates: start: 20100331, end: 20160823
  32. AMOX-CLAV [Concomitant]
     Active Substance: AMOXICILLIN\CLAVULANATE POTASSIUM
     Indication: INFECTION
     Route: 065
     Dates: start: 20141103, end: 20141231
  33. PREDNISONE. [Concomitant]
     Active Substance: PREDNISONE
     Route: 048
     Dates: start: 20110906
  34. LIPITOR [Concomitant]
     Active Substance: ATORVASTATIN CALCIUM
     Route: 048
     Dates: end: 20120306

REACTIONS (3)
  - Renal failure [Unknown]
  - Acute kidney injury [Unknown]
  - Chronic kidney disease [Not Recovered/Not Resolved]

NARRATIVE: CASE EVENT DATE: 20150919
